FAERS Safety Report 12500639 (Version 1)
Quarter: 2016Q2

REPORT INFORMATION
  Report Type: Spontaneous
  Country: GB (occurrence: GB)
  Receive Date: 20160627
  Receipt Date: 20160627
  Transmission Date: 20160815
  Serious: Yes (Other)
  Sender: FDA-Public Use
  Company Number: GB-TEVA-669335ACC

PATIENT
  Age: 59 Year
  Sex: Female
  Weight: 68.03 kg

DRUGS (13)
  1. BECONASE AQ [Concomitant]
     Active Substance: BECLOMETHASONE DIPROPIONATE MONOHYDRATE
  2. CLINDAMYCIN HYDROCHLORIDE. [Suspect]
     Active Substance: CLINDAMYCIN HYDROCHLORIDE
     Indication: CELLULITIS
     Route: 042
  3. BISOPROLOL [Concomitant]
     Active Substance: BISOPROLOL
  4. GAVISCON DOUBLE ACTION [Concomitant]
     Dosage: OCCASIONAL
  5. CETIRIZINE HYDROCHLORIDE. [Concomitant]
     Active Substance: CETIRIZINE HYDROCHLORIDE
  6. METRONIDAZOLE. [Concomitant]
     Active Substance: METRONIDAZOLE
     Route: 042
  7. RABEPRAZOLE SODIUM. [Concomitant]
     Active Substance: RABEPRAZOLE SODIUM
  8. GENTAMICIN. [Concomitant]
     Active Substance: GENTAMICIN
  9. CLINDAMYCIN HYDROCHLORIDE. [Suspect]
     Active Substance: CLINDAMYCIN HYDROCHLORIDE
     Indication: ANTIBIOTIC THERAPY
     Dosage: 600 MILLIGRAM DAILY;
     Route: 048
     Dates: start: 20160515, end: 20160522
  10. PARACETAMOL [Concomitant]
     Active Substance: ACETAMINOPHEN
  11. CIPROFLOXACIN HYDROCHLORIDE. [Suspect]
     Active Substance: CIPROFLOXACIN HYDROCHLORIDE
     Indication: ANTIBIOTIC THERAPY
     Dosage: 500 MILLIGRAM DAILY;
     Route: 048
     Dates: start: 20160515, end: 20160522
  12. CIPROFLOXACIN HYDROCHLORIDE. [Suspect]
     Active Substance: CIPROFLOXACIN HYDROCHLORIDE
     Indication: CELLULITIS
     Route: 042
  13. BUTTERCUP BRONCHOSTOP [Concomitant]

REACTIONS (10)
  - Skin warm [Unknown]
  - Erythema [Unknown]
  - Dry mouth [Unknown]
  - Pruritus [Unknown]
  - Rash macular [Recovering/Resolving]
  - Cough [Unknown]
  - Chills [Unknown]
  - Feeling cold [Unknown]
  - Body temperature increased [Unknown]
  - Tongue coated [Unknown]

NARRATIVE: CASE EVENT DATE: 20160521
